FAERS Safety Report 5302488-0 (Version None)
Quarter: 2007Q1

REPORT INFORMATION
  Report Type: 
  Country: None (occurrence: None)
  Receive Date: 20070201
  Receipt Date: 20061129
  Transmission Date: 20070707
  Serious: No
  Sender: FDA-Public Use
  Company Number: 2006PV026022

PATIENT
  Age: 45 Year
  Sex: Female
  Weight: 117.9352 kg

DRUGS (3)
  1. BYETTA [Suspect]
     Indication: INSULIN RESISTANCE
     Dosage: 10 MCG; BID; SC;  5 MCG; BID; SC
     Route: 058
     Dates: start: 20060601, end: 20060901
  2. BYETTA [Suspect]
     Indication: INSULIN RESISTANCE
     Dosage: 10 MCG; BID; SC;  5 MCG; BID; SC
     Route: 058
     Dates: start: 20060901
  3. ALLEGRA [Concomitant]

REACTIONS (2)
  - INJECTION SITE URTICARIA [None]
  - WEIGHT DECREASED [None]
